FAERS Safety Report 8765708 (Version 1)
Quarter: 2012Q4

REPORT INFORMATION
  Report Type: 
  Country: US (occurrence: US)
  Receive Date: 20120903
  Receipt Date: 20120903
  Transmission Date: 20130627
  Serious: Yes (Hospitalization, Other)
  Sender: FDA-Public Use
  Company Number: PHEH2012US016911

PATIENT
  Sex: Male

DRUGS (1)
  1. ARCAPTA [Suspect]

REACTIONS (3)
  - Chronic obstructive pulmonary disease [Unknown]
  - Bronchitis [Unknown]
  - Dyspnoea [Unknown]
